FAERS Safety Report 6627671-3 (Version None)
Quarter: 2010Q1

REPORT INFORMATION
  Report Type: 
  Country: None (occurrence: None)
  Receive Date: 20100311
  Receipt Date: 20100225
  Transmission Date: 20100710
  Serious: Yes (Other)
  Sender: FDA-Public Use
  Company Number: PHHY2010NL11514

PATIENT
  Sex: Male
  Weight: 82 kg

DRUGS (2)
  1. GLEEVEC [Suspect]
     Indication: NEUROFIBROMATOSIS
     Dosage: 200 MG DAILY
     Route: 048
     Dates: start: 20091130, end: 20100208
  2. AMLODIPINE [Concomitant]
     Dosage: 5 MG DAILY
     Route: 048

REACTIONS (3)
  - FATIGUE [None]
  - NEUROFIBROMATOSIS [None]
  - PRURITUS [None]
